FAERS Safety Report 7638518-0 (Version None)
Quarter: 2011Q3

REPORT INFORMATION
  Report Type: 
  Country: None (occurrence: None)
  Receive Date: 20110726
  Receipt Date: 20110726
  Transmission Date: 20111222
  Serious: Yes (Other)
  Sender: FDA-Public Use
  Company Number: None

PATIENT
  Age: 45 Year
  Sex: Female

DRUGS (2)
  1. VENLAFAXINE HCL EXTENDED-RELEASE [Suspect]
     Indication: GENERALISED ANXIETY DISORDER
     Dosage: 300MG QD PO
     Route: 048
     Dates: start: 20101201, end: 20110101
  2. VENLAFAXINE HCL EXTENDED-RELEASE [Suspect]
     Indication: MAJOR DEPRESSION
     Dosage: 300MG QD PO
     Route: 048
     Dates: start: 20101201, end: 20110101

REACTIONS (3)
  - DEPRESSION [None]
  - GENERALISED ANXIETY DISORDER [None]
  - PRODUCT SUBSTITUTION ISSUE [None]
